FAERS Safety Report 21583732 (Version 1)
Quarter: 2022Q4

REPORT INFORMATION
  Report Type: Spontaneous
  Country: DE (occurrence: DE)
  Receive Date: 20221111
  Receipt Date: 20221111
  Transmission Date: 20230113
  Serious: Yes (Other)
  Sender: FDA-Public Use
  Company Number: DE-002147023-NVSC2022DE203360

PATIENT
  Age: 36 Year
  Sex: Male

DRUGS (5)
  1. ATOMOXETINE HYDROCHLORIDE [Suspect]
     Active Substance: ATOMOXETINE HYDROCHLORIDE
     Indication: Product used for unknown indication
     Dosage: 90 MG, DAILY
     Route: 065
     Dates: start: 202207
  2. DORMICUM [NITRAZEPAM] [Concomitant]
     Indication: Colonoscopy
     Dosage: 25 MG, SINGLE
     Route: 042
     Dates: start: 20220929, end: 20220929
  3. MEPERIDINE [Concomitant]
     Active Substance: MEPERIDINE
     Indication: Colonoscopy
     Dosage: 25 MG, SINGLE
     Route: 042
     Dates: start: 20220929, end: 20220929
  4. PROPOFOL [Concomitant]
     Active Substance: PROPOFOL
     Indication: Colonoscopy
     Dosage: 40 MG, SINGLE
     Route: 042
     Dates: start: 20220929, end: 20220929
  5. PROPOFOL [Concomitant]
     Active Substance: PROPOFOL
     Indication: Endoscopy
     Dosage: 30 MG, SINGLE
     Route: 042
     Dates: start: 20220929, end: 20220929

REACTIONS (7)
  - Cardiac failure [Unknown]
  - Hyperhidrosis [Not Recovered/Not Resolved]
  - Chronic gastritis [Not Recovered/Not Resolved]
  - Haemorrhoids [Unknown]
  - Gastric mucosa erythema [Not Recovered/Not Resolved]
  - Musculoskeletal discomfort [Unknown]
  - Rash [Unknown]

NARRATIVE: CASE EVENT DATE: 20220101
